FAERS Safety Report 4331567-X (Version None)
Quarter: 2004Q2

REPORT INFORMATION
  Report Type: 
  Country: None (occurrence: None)
  Receive Date: 20040405
  Receipt Date: 20031205
  Transmission Date: 20050107
  Serious: Yes (Death, Hospitalization, Disabling, Other)
  Sender: FDA-Public Use
  Company Number: JP-MERCK-0312USA01011

PATIENT
  Age: 77 Year
  Sex: Male

DRUGS (8)
  1. AMLODIN [Suspect]
     Route: 065
  2. ARTIST [Suspect]
     Route: 065
  3. PEPCID [Suspect]
     Route: 048
     Dates: start: 19950117, end: 19951018
  4. PEPCID [Suspect]
     Route: 048
     Dates: end: 20020206
  5. PEPCID [Suspect]
     Route: 048
     Dates: start: 20020308, end: 20030903
  6. FLUOROURACIL [Suspect]
     Route: 048
     Dates: start: 20020320, end: 20020810
  7. KRESTIN [Concomitant]
     Route: 065
  8. SELBEX [Concomitant]
     Route: 065

REACTIONS (12)
  - ANAEMIA [None]
  - BLOOD CREATININE INCREASED [None]
  - BLOOD POTASSIUM INCREASED [None]
  - BLOOD UREA INCREASED [None]
  - GASTRIC CANCER [None]
  - GASTRIC PERFORATION [None]
  - GLOMERULONEPHRITIS CHRONIC [None]
  - HAEMOGLOBIN DECREASED [None]
  - LEUKOPENIA [None]
  - MULTIPLE MYELOMA [None]
  - PLATELET COUNT DECREASED [None]
  - PNEUMONIA [None]
